FAERS Safety Report 19148204 (Version 1)
Quarter: 2021Q2

REPORT INFORMATION
  Report Type: Spontaneous
  Country: FR (occurrence: FR)
  Receive Date: 20210416
  Receipt Date: 20210416
  Transmission Date: 20210717
  Serious: Yes (Death)
  Sender: FDA-Public Use
  Company Number: FR-TEVA-2021-FR-1900520

PATIENT
  Age: 65 Year
  Sex: Male

DRUGS (1)
  1. RAMIPRIL. [Suspect]
     Active Substance: RAMIPRIL
     Indication: HYPERTENSION
     Dosage: 1.25MG
     Route: 048
     Dates: end: 20210306

REACTIONS (1)
  - Laryngeal oedema [Fatal]

NARRATIVE: CASE EVENT DATE: 20210305
